FAERS Safety Report 25187895 (Version 1)
Quarter: 2025Q2

REPORT INFORMATION
  Report Type: Spontaneous
  Country: PR (occurrence: PR)
  Receive Date: 20250411
  Receipt Date: 20250411
  Transmission Date: 20250716
  Serious: Yes (Hospitalization, Other)
  Sender: NOVITIUM PHARMA
  Company Number: PR-NOVITIUMPHARMA-2025PRNVP00885

PATIENT
  Age: 62 Year
  Sex: Male

DRUGS (1)
  1. LIDOCAINE HYDROCHLORIDE [Suspect]
     Active Substance: LIDOCAINE HYDROCHLORIDE
     Indication: Local anaesthesia
     Route: 058

REACTIONS (4)
  - Status epilepticus [Recovered/Resolved]
  - Shock [Recovered/Resolved]
  - Local anaesthetic systemic toxicity [Recovered/Resolved]
  - Accidental overdose [Unknown]
